FAERS Safety Report 6965924-X (Version None)
Quarter: 2010Q3

REPORT INFORMATION
  Report Type: 
  Country: None (occurrence: None)
  Receive Date: 20100903
  Receipt Date: 20100830
  Transmission Date: 20110219
  Serious: Yes (Death, Hospitalization)
  Sender: FDA-Public Use
  Company Number: JP-BAYER-201013805BYL

PATIENT
  Age: 74 Year
  Sex: Male
  Weight: 58 kg

DRUGS (12)
  1. NEXAVAR [Suspect]
     Indication: HEPATIC NEOPLASM MALIGNANT
     Dosage: TOTAL DAILY DOSE: 400 MG  UNIT DOSE: 200 MG
     Route: 048
     Dates: start: 20100217, end: 20100605
  2. ACTOS [Concomitant]
     Dosage: SINCE BEFORE THE ADMINISTRATION OF NEXAVAR
     Route: 048
  3. AMARYL [Concomitant]
     Dosage: SINCE BEFORE THE ADMINISTRATION OF NEXAVAR
     Route: 048
  4. SEIBULE [Concomitant]
     Dosage: SINCE BEFORE THE ADMINISTRATION OF NEXAVAR
     Route: 048
  5. URSO 250 [Concomitant]
     Dosage: SINCE BEFORE THE ADMINISTRATION OF NEXAVAR
     Route: 048
  6. MUCOSTA [Concomitant]
     Dosage: SINCE BEFORE THE ADMINISTRATION OF NEXAVAR
     Route: 048
  7. PARIET [Concomitant]
     Dosage: SINCE BEFORE THE ADMINISTRATION OF NEXAVAR
     Route: 048
  8. LASIX [Concomitant]
     Indication: ASCITES
     Dosage: SINCE BEFORE THE ADMINISTRATION OF NEXAVAR
     Route: 048
  9. LASIX [Concomitant]
     Route: 048
     Dates: start: 20100630, end: 20100701
  10. ALDACTONE [Concomitant]
     Dosage: SINCE BEFORE THE ADMINISTRATION OF NEXAVAR
     Route: 048
  11. HYPEN [Concomitant]
     Dosage: SINCE BEFORE THE ADMINISTRATION OF NEXAVAR
     Route: 048
  12. MUCODYNE [Concomitant]
     Dosage: SINCE BEFORE THE ADMINISTRATION OF NEXAVAR
     Route: 048

REACTIONS (6)
  - ASCITES [None]
  - DIARRHOEA [None]
  - HEPATIC FAILURE [None]
  - HEPATIC NEOPLASM MALIGNANT [None]
  - OESOPHAGEAL VARICES HAEMORRHAGE [None]
  - PYREXIA [None]
